FAERS Safety Report 9753621 (Version 3)
Quarter: 2014Q1

REPORT INFORMATION
  Report Type: Report from Study
  Country: FR (occurrence: FR)
  Receive Date: 20131213
  Receipt Date: 20140130
  Transmission Date: 20141002
  Serious: Yes (Death)
  Sender: FDA-Public Use
  Company Number: FR-CELGENEUS-056-C4047-13121754

PATIENT
  Sex: Male
  Weight: 75 kg

DRUGS (28)
  1. CC-4047 [Suspect]
     Indication: PLASMA CELL MYELOMA
     Dosage: 4 MILLIGRAM
     Route: 048
     Dates: start: 20130904, end: 201310
  2. DEXAMETHASONE [Concomitant]
     Indication: PLASMA CELL MYELOMA
     Dosage: 20 MILLIGRAM
     Route: 065
  3. DEXAMETHASONE [Concomitant]
     Route: 065
     Dates: start: 20121012, end: 20121116
  4. DEXAMETHASONE [Concomitant]
     Route: 065
     Dates: start: 20070823, end: 20080209
  5. DEXAMETHASONE [Concomitant]
     Route: 065
     Dates: start: 20080312, end: 20080604
  6. DEXAMETHASONE [Concomitant]
     Route: 065
     Dates: start: 20121228, end: 20130124
  7. DEXAMETHASONE [Concomitant]
     Route: 065
     Dates: start: 20130308
  8. DEXAMETHASONE [Concomitant]
     Route: 065
     Dates: start: 20130517, end: 20130812
  9. BACTRIN [Concomitant]
     Indication: PRODUCT USED FOR UNKNOWN INDICATION
     Route: 065
  10. FOLIC ACID [Concomitant]
     Indication: PRODUCT USED FOR UNKNOWN INDICATION
     Dosage: 10 MILLIGRAM
     Route: 065
  11. ZELITREX [Concomitant]
     Indication: PRODUCT USED FOR UNKNOWN INDICATION
     Dosage: 500 MILLIGRAM
     Route: 065
  12. ASPEGIC [Concomitant]
     Indication: PRODUCT USED FOR UNKNOWN INDICATION
     Dosage: 100 MILLIGRAM
     Route: 065
  13. VELCADE [Concomitant]
     Indication: PLASMA CELL MYELOMA
     Route: 065
     Dates: start: 20070823, end: 20080209
  14. VELCADE [Concomitant]
     Route: 065
     Dates: start: 20121012, end: 20121116
  15. REVLIMID [Concomitant]
     Indication: PLASMA CELL MYELOMA
     Route: 048
     Dates: start: 20080312, end: 20080604
  16. REVLIMID [Concomitant]
     Route: 048
     Dates: start: 20121012, end: 20121116
  17. REVLIMID [Concomitant]
     Route: 048
     Dates: start: 20130419
  18. REVLIMID [Concomitant]
     Route: 048
     Dates: start: 20130517, end: 20130812
  19. SOTALOL [Concomitant]
     Indication: PRODUCT USED FOR UNKNOWN INDICATION
     Route: 065
  20. CARDENSIEL [Concomitant]
     Indication: PRODUCT USED FOR UNKNOWN INDICATION
     Route: 065
     Dates: start: 2013
  21. ACE INHIBITOR [Concomitant]
     Indication: PRODUCT USED FOR UNKNOWN INDICATION
     Route: 065
     Dates: start: 2013
  22. AREDIA [Concomitant]
     Indication: PLASMA CELL MYELOMA
     Route: 065
     Dates: start: 20121012, end: 20121116
  23. AREDIA [Concomitant]
     Route: 065
     Dates: start: 20121228, end: 20130124
  24. BENDAMUSTINE [Concomitant]
     Indication: PLASMA CELL MYELOMA
     Route: 065
     Dates: start: 20121228, end: 20130124
  25. CYCLOPHOSPHAMID [Concomitant]
     Indication: PLASMA CELL MYELOMA
     Route: 065
     Dates: start: 20130308
  26. ETOPOSIDE [Concomitant]
     Indication: PLASMA CELL MYELOMA
     Route: 065
     Dates: start: 20130308
  27. MELPHALAN [Concomitant]
     Indication: PLASMA CELL MYELOMA
     Route: 065
     Dates: start: 20130419
  28. PREDNISONE [Concomitant]
     Indication: PLASMA CELL MYELOMA
     Route: 065
     Dates: start: 20130419

REACTIONS (1)
  - Plasma cell myeloma [Fatal]
